FAERS Safety Report 5134026-X (Version None)
Quarter: 2006Q4

REPORT INFORMATION
  Report Type: 
  Country: None (occurrence: None)
  Receive Date: 20061019
  Receipt Date: 20061010
  Transmission Date: 20070319
  Serious: Yes (Other)
  Sender: FDA-Public Use
  Company Number: 2006107413

PATIENT

DRUGS (1)
  1. SALAZOPYRIN (SULFASALAZINE) [Suspect]
     Indication: COLITIS ULCERATIVE

REACTIONS (2)
  - DRUG EXPOSURE DURING PREGNANCY [None]
  - FOETAL GROWTH RETARDATION [None]
